FAERS Safety Report 6342018-8 (Version None)
Quarter: 2009Q3

REPORT INFORMATION
  Report Type: 
  Country: None (occurrence: None)
  Receive Date: 20090904
  Receipt Date: 20090831
  Transmission Date: 20100115
  Serious: Yes (Hospitalization, Disabling, Other)
  Sender: FDA-Public Use
  Company Number: US-MERCK-0905USA04110

PATIENT
  Age: 59 Year
  Sex: Female

DRUGS (2)
  1. FOSAMAX [Suspect]
     Indication: PROPHYLAXIS
     Route: 048
     Dates: start: 20011001, end: 20070901
  2. FOSAMAX [Suspect]
     Indication: OSTEOPOROSIS
     Route: 048
     Dates: start: 20011001, end: 20070901

REACTIONS (37)
  - ABSCESS [None]
  - ADVERSE DRUG REACTION [None]
  - ANXIETY [None]
  - AORTIC STENOSIS [None]
  - BLISTER [None]
  - BONE DISORDER [None]
  - CARDIAC FAILURE [None]
  - CAROTID ARTERY DISEASE [None]
  - CARPAL TUNNEL SYNDROME [None]
  - CELLULITIS [None]
  - DEPRESSION [None]
  - DIABETIC NEUROPATHY [None]
  - DYSPNOEA EXERTIONAL [None]
  - EDENTULOUS [None]
  - EXOSTOSIS [None]
  - FALL [None]
  - FISTULA DISCHARGE [None]
  - FOOT FRACTURE [None]
  - FUNGAL INFECTION [None]
  - GINGIVAL ABSCESS [None]
  - GLOSSITIS [None]
  - HYPERTRIGLYCERIDAEMIA [None]
  - JAW DISORDER [None]
  - LICHEN PLANUS [None]
  - MUSCULOSKELETAL PAIN [None]
  - OROPHARYNGEAL PAIN [None]
  - OSTEOARTHRITIS [None]
  - OSTEOMYELITIS [None]
  - OSTEONECROSIS [None]
  - PAIN IN EXTREMITY [None]
  - PALPITATIONS [None]
  - PARAESTHESIA [None]
  - POSTMENOPAUSAL HAEMORRHAGE [None]
  - TEMPOROMANDIBULAR JOINT SYNDROME [None]
  - TOOTH ABSCESS [None]
  - TRISMUS [None]
  - WHEEZING [None]
